FAERS Safety Report 7637086-7 (Version None)
Quarter: 2011Q3

REPORT INFORMATION
  Report Type: 
  Country: None (occurrence: None)
  Receive Date: 20110722
  Receipt Date: 20110722
  Transmission Date: 20111222
  Serious: Yes (Life-Threatening, Disabling, Other)
  Sender: FDA-Public Use
  Company Number: None

PATIENT
  Age: 57 Year
  Sex: Male
  Weight: 114.76 kg

DRUGS (2)
  1. CITALOPRAM 40 MG. TABLET 10, 20, 40 MG [Suspect]
     Indication: DEPRESSION
     Dosage: 1/2 TABLET EVERY DAY ONCE EVERY DAY AFTER THAT
     Dates: start: 20100708
  2. SEROQUEL [Suspect]
     Indication: DEPRESSION
     Dosage: 1/2 TABLET EVERYDAY ONCE
     Dates: start: 20110606

REACTIONS (5)
  - DIZZINESS [None]
  - MEMORY IMPAIRMENT [None]
  - EATING DISORDER [None]
  - FATIGUE [None]
  - BLOOD GLUCOSE INCREASED [None]
